FAERS Safety Report 15412880 (Version 1)
Quarter: 2018Q4

REPORT INFORMATION
  Report Type: Spontaneous
  Country: FR (occurrence: FR)
  Receive Date: 20180921
  Receipt Date: 20180921
  Transmission Date: 20190204
  Serious: Yes (Hospitalization)
  Sender: FDA-Public Use
  Company Number: FR-PFIZER INC-2018376170

PATIENT
  Age: 29 Year
  Sex: Male

DRUGS (13)
  1. TEMESTA (LORAZEPAM) [Suspect]
     Active Substance: LORAZEPAM
     Dosage: 5 DF, 1X/DAY
     Route: 065
  2. LSD 25 [Suspect]
     Active Substance: LYSERGIDE
     Dosage: UNK
     Route: 048
     Dates: start: 2008, end: 2014
  3. ALCOHOL. [Suspect]
     Active Substance: ALCOHOL
     Dosage: 10 UNITS, DAILY
     Route: 048
     Dates: start: 2005
  4. VALIUM [Suspect]
     Active Substance: DIAZEPAM
     Dosage: 10 DF, 1X/DAY
     Route: 065
  5. MDMA [Suspect]
     Active Substance: MIDOMAFETAMINE
     Dosage: UNK
     Route: 048
     Dates: start: 2008, end: 2014
  6. METHADONE AP HP [Suspect]
     Active Substance: METHADONE HYDROCHLORIDE
     Dosage: UNK
     Route: 048
     Dates: start: 2014
  7. MORPHINE SULFATE. [Suspect]
     Active Substance: MORPHINE SULFATE
     Dosage: UNK
     Route: 065
  8. COCAINE [Suspect]
     Active Substance: COCAINE
     Dosage: UNK
     Route: 042
     Dates: start: 2008
  9. CANNABIS [Suspect]
     Active Substance: CANNABIS SATIVA SUBSP. INDICA TOP
     Dosage: UNK
     Route: 055
     Dates: start: 2005, end: 2005
  10. TOBACCO [Suspect]
     Active Substance: TOBACCO LEAF
     Indication: TOBACCO USER
     Dosage: 10 CIGARETTES, DAILY
     Route: 055
     Dates: start: 1999
  11. HEROIN [Suspect]
     Active Substance: DIAMORPHINE
     Indication: DRUG DEPENDENCE
     Dosage: UNK
     Route: 065
     Dates: start: 2008, end: 2014
  12. SUBUTEX [Suspect]
     Active Substance: BUPRENORPHINE HYDROCHLORIDE
     Dosage: UNK
     Route: 042
     Dates: start: 2013, end: 2014
  13. KETAMINE [Suspect]
     Active Substance: KETAMINE
     Dosage: UNK
     Route: 065
     Dates: start: 2008, end: 2014

REACTIONS (4)
  - Alcohol abuse [Recovering/Resolving]
  - Drug dependence [Recovering/Resolving]
  - Substance abuse [Recovering/Resolving]
  - Intentional product misuse [Recovering/Resolving]

NARRATIVE: CASE EVENT DATE: 2005
